FAERS Safety Report 5084389-9 (Version None)
Quarter: 2006Q3

REPORT INFORMATION
  Report Type: 
  Country: None (occurrence: None)
  Receive Date: 20060821
  Receipt Date: 20060726
  Transmission Date: 20061208
  Serious: Yes (Death)
  Sender: FDA-Public Use
  Company Number: US-BRISTOL-MYERS SQUIBB COMPANY-13456728

PATIENT
  Age: 63 Year
  Sex: Female

DRUGS (4)
  1. ERBITUX [Suspect]
     Indication: COLORECTAL CANCER
     Dates: start: 20060209, end: 20060309
  2. BENADRYL [Concomitant]
  3. DECADRON [Concomitant]
  4. ZANTAC [Concomitant]

REACTIONS (4)
  - ELECTROLYTE IMBALANCE [None]
  - MALIGNANT NEOPLASM PROGRESSION [None]
  - NAUSEA [None]
  - VOMITING [None]
